FAERS Safety Report 17213723 (Version 1)
Quarter: 2019Q4

REPORT INFORMATION
  Report Type: Spontaneous
  Country: JP (occurrence: JP)
  Receive Date: 20191230
  Receipt Date: 20191230
  Transmission Date: 20200122
  Serious: Yes (Other)
  Sender: FDA-Public Use
  Company Number: JP-PFIZER INC-2019556654

PATIENT
  Age: 6 Decade
  Sex: Female

DRUGS (2)
  1. CRESTOR [Concomitant]
     Active Substance: ROSUVASTATIN CALCIUM
     Indication: BLOOD CHOLESTEROL INCREASED
  2. LORBRENA [Suspect]
     Active Substance: LORLATINIB

REACTIONS (2)
  - Renal impairment [Recovering/Resolving]
  - Blood cholesterol increased [Recovering/Resolving]
